FAERS Safety Report 10181273 (Version 1)
Quarter: 2014Q2

REPORT INFORMATION
  Report Type: Spontaneous
  Country: US (occurrence: US)
  Receive Date: 20140519
  Receipt Date: 20140519
  Transmission Date: 20141212
  Serious: No
  Sender: FDA-Public Use
  Company Number: US-AMGEN INC.-USASP2014032085

PATIENT
  Age: 81 Year
  Sex: Female

DRUGS (6)
  1. PROLIA [Suspect]
     Indication: OSTEOPOROSIS POSTMENOPAUSAL
     Dosage: UNK UNK, Q6MO
     Route: 065
     Dates: start: 201204
  2. GABAPENTIN [Concomitant]
  3. MULTIVITAMIN                       /00097801/ [Concomitant]
  4. PRILOSEC                           /00661201/ [Concomitant]
  5. CALCIUM CITRATE + D [Concomitant]
  6. MELATONIN [Concomitant]

REACTIONS (1)
  - Herpes zoster [Not Recovered/Not Resolved]
